FAERS Safety Report 10142672 (Version 2)
Quarter: 2014Q2

REPORT INFORMATION
  Report Type: Spontaneous
  Country: US (occurrence: None)
  Receive Date: 20140425
  Receipt Date: 20140429
  Transmission Date: 20141212
  Serious: Yes (Other)
  Sender: FDA-Public Use
  Company Number: AUR-APL-2014-04737

PATIENT
  Age: 51 Year
  Sex: Female

DRUGS (9)
  1. GABAPENTIN [Suspect]
     Indication: PRODUCT USED FOR UNKNOWN INDICATION
     Dosage: 1800 MG (600 MG, 3 IN 1 D), UNKNOWN
  2. GLIBENCLAMIDE [Concomitant]
  3. METFORMIN (METFORMIN) [Concomitant]
  4. BACLOFEN (BACLOFEN) [Concomitant]
  5. TRUVADA (TRUVADA) [Concomitant]
  6. DARUNAVIR (DARUNAVIR) [Concomitant]
  7. ASPIRIN (ACETYLSALICYLIC ACID) [Concomitant]
  8. TRAZODONE (TRAZODONE) [Concomitant]
  9. RITONAVIR (RITONAVIR) [Concomitant]

REACTIONS (3)
  - Hepatotoxicity [None]
  - Drug-induced liver injury [None]
  - Drug-induced liver injury [None]
